FAERS Safety Report 21407708 (Version 2)
Quarter: 2022Q4

REPORT INFORMATION
  Report Type: Report from Study
  Country: ES (occurrence: ES)
  Receive Date: 20221004
  Receipt Date: 20221021
  Transmission Date: 20230113
  Serious: Yes (Death, Hospitalization, Other)
  Sender: FDA-Public Use
  Company Number: ES-TAKEDA-2022TUS070437

PATIENT
  Age: 69 Year

DRUGS (1)
  1. MOBOCERTINIB [Suspect]
     Active Substance: MOBOCERTINIB
     Indication: Lung adenocarcinoma
     Dosage: UNK
     Route: 065
     Dates: start: 20220217, end: 20220304

REACTIONS (4)
  - Respiratory failure [Fatal]
  - Lung adenocarcinoma [Fatal]
  - Fluid retention [Unknown]
  - Blood pressure abnormal [Unknown]
